FAERS Safety Report 11455768 (Version 1)
Quarter: 2015Q3

REPORT INFORMATION
  Report Type: Spontaneous
  Country: US (occurrence: US)
  Receive Date: 20150903
  Receipt Date: 20150903
  Transmission Date: 20151125
  Serious: Yes (Other)
  Sender: FDA-Public Use
  Company Number: US-TEVA-589827USA

PATIENT
  Age: 60 Year
  Sex: Female
  Weight: 77 kg

DRUGS (7)
  1. VALIUM [Suspect]
     Active Substance: DIAZEPAM
     Route: 065
  2. DIAZEPAM. [Suspect]
     Active Substance: DIAZEPAM
     Indication: NECK INJURY
     Dosage: 3 TIMES A DAY AS NEEDED
     Route: 048
  3. ACETAMINOPHEN W/OXYCODONE [Concomitant]
     Active Substance: ACETAMINOPHEN\OXYCODONE HYDROCHLORIDE
     Indication: PAIN
     Dosage: 7.5/325MG, EVERY 4 HOURS AS NEEDED
     Route: 048
  4. XIFAXAN [Concomitant]
     Active Substance: RIFAXIMIN
     Indication: DIARRHOEA
     Dosage: 1100 MILLIGRAM DAILY;
     Route: 048
  5. METAXALONE. [Suspect]
     Active Substance: METAXALONE
     Route: 065
  6. SKELAXIN [Suspect]
     Active Substance: METAXALONE
     Indication: MUSCLE SPASMS
     Dosage: 2400 MILLIGRAM DAILY;
     Route: 048
     Dates: start: 20150615
  7. SUMATRIPTAN. [Concomitant]
     Active Substance: SUMATRIPTAN
     Indication: MIGRAINE
     Dosage: 100 MILLIGRAM DAILY; DO NOT EXCEED 2 TABS IN 24 HOURS
     Route: 048

REACTIONS (9)
  - Rheumatoid arthritis [Not Recovered/Not Resolved]
  - Neck injury [Unknown]
  - Product use issue [Unknown]
  - Muscle spasms [Not Recovered/Not Resolved]
  - Hepatitis C [Not Recovered/Not Resolved]
  - Hepatic cirrhosis [Not Recovered/Not Resolved]
  - Internal haemorrhage [Unknown]
  - Knee arthroplasty [Unknown]
  - Screaming [Not Recovered/Not Resolved]

NARRATIVE: CASE EVENT DATE: 1994
